FAERS Safety Report 9345242 (Version 1)
Quarter: 2013Q2

REPORT INFORMATION
  Report Type: Report from Study
  Country: DE (occurrence: DE)
  Receive Date: 20130612
  Receipt Date: 20130612
  Transmission Date: 20140414
  Serious: Yes (Other)
  Sender: FDA-Public Use
  Company Number: DE-ROCHE-1236075

PATIENT
  Age: 77 Year
  Sex: Female

DRUGS (3)
  1. AVASTIN [Suspect]
     Indication: OVARIAN CANCER
     Route: 065
     Dates: start: 20120829, end: 20130122
  2. CARBOPLATIN [Concomitant]
     Indication: OVARIAN CANCER
     Route: 065
     Dates: start: 20120829, end: 20121212
  3. PACLITAXEL [Concomitant]
     Indication: OVARIAN CANCER
     Route: 065
     Dates: start: 20120829, end: 20121212

REACTIONS (1)
  - Toxicity to various agents [Unknown]
